FAERS Safety Report 24086259 (Version 1)
Quarter: 2024Q3

REPORT INFORMATION
  Report Type: Spontaneous
  Country: US (occurrence: US)
  Receive Date: 20240712
  Receipt Date: 20240712
  Transmission Date: 20241016
  Serious: No
  Sender: Agepha Pharmaceuticals
  Company Number: US-AGEPHA PHARMA FZ LLC-AGP202406-000010

PATIENT
  Age: 51 Year
  Sex: Male

DRUGS (4)
  1. LODOCO [Suspect]
     Active Substance: COLCHICINE
     Indication: Product used for unknown indication
     Dosage: 0.5 MILLIGRAM, QD ( 01 TABLET)
     Route: 048
     Dates: start: 20240402, end: 2024
  2. LODOCO [Suspect]
     Active Substance: COLCHICINE
     Dosage: 0.5 MILLIGRAM, QD ( 01 TABLET)
     Route: 048
     Dates: start: 2024, end: 2024
  3. SILDENAFIL [Concomitant]
     Active Substance: SILDENAFIL
     Indication: Erectile dysfunction
     Dosage: UNK, UNK
     Route: 065
  4. SILDENAFIL [Concomitant]
     Active Substance: SILDENAFIL
     Dosage: 200 MILLIGRAM, UNK
     Route: 065

REACTIONS (2)
  - Erectile dysfunction [Recovered/Resolved]
  - Libido decreased [Recovered/Resolved]

NARRATIVE: CASE EVENT DATE: 20240101
